FAERS Safety Report 20395727 (Version 5)
Quarter: 2023Q4

REPORT INFORMATION
  Report Type: Report from Study
  Country: BR (occurrence: BR)
  Receive Date: 20220130
  Receipt Date: 20231102
  Transmission Date: 20240109
  Serious: Yes (Hospitalization, Disabling, Other)
  Sender: FDA-Public Use
  Company Number: BR-ABBVIE-22K-020-4253960-00

PATIENT
  Age: 67 Year
  Sex: Female
  Weight: 46 kg

DRUGS (2)
  1. RINVOQ [Suspect]
     Active Substance: UPADACITINIB
     Indication: Rheumatoid arthritis
     Dosage: 15 MILLIGRAM
     Route: 048
     Dates: start: 20210805
  2. RINVOQ [Suspect]
     Active Substance: UPADACITINIB
     Indication: Rheumatoid arthritis
     Dosage: 15 MILLIGRAM
     Route: 048

REACTIONS (14)
  - Bedridden [Recovering/Resolving]
  - Infarction [Recovering/Resolving]
  - Brain hypoxia [Recovering/Resolving]
  - Loss of consciousness [Recovering/Resolving]
  - Device dislocation [Recovered/Resolved]
  - Abdominal discomfort [Recovering/Resolving]
  - Dysarthria [Recovering/Resolving]
  - Tremor [Unknown]
  - Gastrointestinal disorder [Recovered/Resolved]
  - Abdominal distension [Recovered/Resolved]
  - Malaise [Unknown]
  - Dyspnoea [Recovering/Resolving]
  - Headache [Unknown]
  - Gastrointestinal disorder [Unknown]

NARRATIVE: CASE EVENT DATE: 20220101
